FAERS Safety Report 11868120 (Version 1)
Quarter: 2015Q4

REPORT INFORMATION
  Report Type: Spontaneous
  Country: US (occurrence: None)
  Receive Date: 20151223
  Receipt Date: 20151223
  Transmission Date: 20160305
  Serious: Yes (Life-Threatening, Disabling)
  Sender: FDA-Public Use
  Company Number: None

PATIENT
  Age: 46 Year
  Sex: Male
  Weight: 72.58 kg

DRUGS (6)
  1. METRONIDAZOLE. [Concomitant]
     Active Substance: METRONIDAZOLE
  2. VORICONAZOLE 200MG [Suspect]
     Active Substance: VORICONAZOLE
     Indication: HISTOPLASMOSIS
     Route: 048
     Dates: start: 20150215, end: 20151221
  3. VITAMIN B-12 SUPPLEMENT [Concomitant]
  4. IRON SUPPLEMENT [Concomitant]
     Active Substance: IRON
  5. VORICONAZOLE 200MG [Suspect]
     Active Substance: VORICONAZOLE
     Indication: PROPHYLAXIS
     Route: 048
     Dates: start: 20150215, end: 20151221
  6. HUMIRA [Concomitant]
     Active Substance: ADALIMUMAB

REACTIONS (2)
  - Neoplasm recurrence [None]
  - Squamous cell carcinoma [None]

NARRATIVE: CASE EVENT DATE: 20151015
